FAERS Safety Report 5174652-5 (Version None)
Quarter: 2006Q4

REPORT INFORMATION
  Report Type: 
  Country: None (occurrence: None)
  Receive Date: 20061214
  Receipt Date: 20060613
  Transmission Date: 20070319
  Serious: No
  Sender: FDA-Public Use
  Company Number: US-AMGEN-KDL182987

PATIENT
  Sex: Female

DRUGS (3)
  1. ENBREL [Suspect]
     Indication: ANKYLOSING SPONDYLITIS
     Route: 058
     Dates: start: 20050701
  2. XANAX [Concomitant]
  3. WELLBUTRIN [Concomitant]

REACTIONS (7)
  - ANXIETY [None]
  - BACK PAIN [None]
  - HYPOAESTHESIA [None]
  - LOWER RESPIRATORY TRACT INFECTION [None]
  - PARAESTHESIA [None]
  - SCIATICA [None]
  - URINARY TRACT INFECTION [None]
